FAERS Safety Report 5240444-1 (Version None)
Quarter: 2007Q1

REPORT INFORMATION
  Report Type: 
  Country: None (occurrence: None)
  Receive Date: 20061208
  Receipt Date: 20060405
  Transmission Date: 20070707
  Serious: Yes (Other)
  Sender: FDA-Public Use
  Company Number: 2006UW06025

PATIENT
  Age: 72 Year
  Sex: Female

DRUGS (9)
  1. CRESTOR [Suspect]
     Indication: BLOOD CHOLESTEROL INCREASED
     Dosage: 10 MG PO
     Route: 048
  2. CARTIA XT [Concomitant]
  3. ZETIA [Concomitant]
  4. ACIPHEX [Concomitant]
  5. RANITIDINE [Concomitant]
  6. AMLORIDE HCL W/HYDROCHLOROTHIAZIDE [Concomitant]
  7. ZYRTEC [Concomitant]
  8. CALCIUM [Concomitant]
  9. POTASSIUM ACETATE [Concomitant]

REACTIONS (8)
  - BACK PAIN [None]
  - DYSPNOEA [None]
  - DYSURIA [None]
  - MYALGIA [None]
  - RASH PRURITIC [None]
  - SWELLING [None]
  - URINE OUTPUT DECREASED [None]
  - WEIGHT INCREASED [None]
